FAERS Safety Report 5765772-2 (Version None)
Quarter: 2008Q2

REPORT INFORMATION
  Report Type: 
  Country: None (occurrence: None)
  Receive Date: 20080605
  Receipt Date: 20080222
  Transmission Date: 20081010
  Serious: Yes (Other)
  Sender: FDA-Public Use
  Company Number: SPV1-2008-00426

PATIENT
  Age: 10 Year
  Sex: Male

DRUGS (2)
  1. DAYTRANA [Suspect]
     Dosage: 20 MG, 1X/DAY:QD, TRANSDERMAL
     Route: 062
     Dates: start: 20070201
  2. TRILEPTAL [Suspect]
     Indication: PROPHYLAXIS

REACTIONS (3)
  - ABNORMAL BEHAVIOUR [None]
  - CONVULSION [None]
  - DRUG INTERACTION [None]
